FAERS Safety Report 15888003 (Version 1)
Quarter: 2019Q1

REPORT INFORMATION
  Report Type: Spontaneous
  Country: US (occurrence: US)
  Receive Date: 20190130
  Receipt Date: 20190130
  Transmission Date: 20190417
  Serious: No
  Sender: FDA-Public Use
  Company Number: US-PFIZER INC-2019042218

PATIENT
  Sex: Female

DRUGS (6)
  1. CIPRO [Suspect]
     Active Substance: CIPROFLOXACIN HYDROCHLORIDE
     Dosage: UNK
  2. OFLOXACIN. [Suspect]
     Active Substance: OFLOXACIN
     Dosage: UNK
  3. PREDNISONE. [Suspect]
     Active Substance: PREDNISONE
     Dosage: UNK
  4. AZITHROMYCIN ANHYDROUS. [Suspect]
     Active Substance: AZITHROMYCIN ANHYDROUS
     Dosage: UNK
  5. LASIX [Suspect]
     Active Substance: FUROSEMIDE
     Dosage: UNK
  6. AZTREONAM. [Suspect]
     Active Substance: AZTREONAM
     Dosage: UNK

REACTIONS (1)
  - Drug hypersensitivity [Unknown]
